FAERS Safety Report 10958551 (Version 3)
Quarter: 2015Q2

REPORT INFORMATION
  Report Type: Spontaneous
  Country: US (occurrence: US)
  Receive Date: 20150326
  Receipt Date: 20150421
  Transmission Date: 20150821
  Serious: No
  Sender: FDA-Public Use
  Company Number: US-GLAXOSMITHKLINE-US2015032719

PATIENT
  Age: 49 Year
  Sex: Female

DRUGS (3)
  1. NICODERM CQ [Suspect]
     Active Substance: NICOTINE
     Dosage: UNK
  2. NICODERM CQ [Suspect]
     Active Substance: NICOTINE
     Indication: SMOKING CESSATION THERAPY
     Dosage: 14 MG, UNK
  3. NICODERM CQ [Suspect]
     Active Substance: NICOTINE
     Dosage: 21 MG, UNK

REACTIONS (9)
  - Application site erythema [Not Recovered/Not Resolved]
  - Application site vesicles [Not Recovered/Not Resolved]
  - Application site scab [Not Recovered/Not Resolved]
  - Product quality issue [Unknown]
  - Application site irritation [Unknown]
  - Hypersensitivity [Not Recovered/Not Resolved]
  - Application site discolouration [Unknown]
  - Application site scar [Not Recovered/Not Resolved]
  - Application site pain [Not Recovered/Not Resolved]
